FAERS Safety Report 4784737-0 (Version None)
Quarter: 2005Q3

REPORT INFORMATION
  Report Type: 
  Country: None (occurrence: None)
  Receive Date: 20050930
  Receipt Date: 20050926
  Transmission Date: 20060218
  Serious: Yes (Hospitalization)
  Sender: FDA-Public Use
  Company Number: FR-ROCHE-418990

PATIENT
  Age: 50 Year
  Sex: Male

DRUGS (3)
  1. PEGASYS [Suspect]
     Dosage: FORM REPORTED AS ^INJECTABLE SOLUTION^.
     Route: 058
     Dates: start: 20050601, end: 20050822
  2. COPEGUS [Concomitant]
     Dates: start: 20050601
  3. TEGRETOL [Suspect]
     Dosage: REPORTED AS ^TEGRETOL LP 400 MG^.
     Route: 048
     Dates: start: 20050610, end: 20050804

REACTIONS (6)
  - CHEILITIS [None]
  - DERMATITIS [None]
  - NEUTROPENIA [None]
  - PRURITUS GENERALISED [None]
  - RASH PAPULAR [None]
  - THROMBOCYTOPENIA [None]
